FAERS Safety Report 5225884-9 (Version None)
Quarter: 2007Q1

REPORT INFORMATION
  Report Type: 
  Country: None (occurrence: None)
  Receive Date: 20070201
  Receipt Date: 20070124
  Transmission Date: 20070707
  Serious: Yes (Life-Threatening, Hospitalization)
  Sender: FDA-Public Use
  Company Number: HQWYE452124JAN07

PATIENT
  Age: 81 Year
  Sex: Male

DRUGS (15)
  1. CORDARONE [Suspect]
     Dosage: 200 MG TABLET; DAILY DOSE AND FREQUENCY NOT SPECIFIED
     Route: 048
  2. LASIX [Concomitant]
     Route: 048
  3. ASPIRIN [Concomitant]
     Dosage: 160 MG EVERY
     Route: 048
  4. DIFFU K [Concomitant]
     Route: 048
  5. OMEPRAZOLE [Concomitant]
     Route: 048
  6. TRINIPATCH [Concomitant]
     Dosage: NOT SPECIFIED
     Route: 065
     Dates: end: 20061220
  7. CORVASAL [Concomitant]
  8. MIXTARD HUMAN 70/30 [Concomitant]
  9. LEXOMIL [Concomitant]
  10. PREVISCAN [Concomitant]
  11. PRAVASTATIN [Concomitant]
  12. DITROPAN [Concomitant]
  13. SYMBICORT [Concomitant]
     Dosage: NOT SPECIFIED
     Route: 065
     Dates: end: 20061220
  14. ATROVENT [Concomitant]
  15. TILDIEM [Suspect]
     Route: 048
     Dates: end: 20061220

REACTIONS (2)
  - ACUTE PULMONARY OEDEMA [None]
  - NODAL RHYTHM [None]
